FAERS Safety Report 9839914 (Version 1)
Quarter: 2014Q1

REPORT INFORMATION
  Report Type: Spontaneous
  Country: FI (occurrence: FI)
  Receive Date: 20140124
  Receipt Date: 20140124
  Transmission Date: 20141002
  Serious: Yes (Other)
  Sender: FDA-Public Use
  Company Number: FI-AMGEN-FINSP2014003746

PATIENT
  Age: 64 Year
  Sex: Female

DRUGS (6)
  1. NEULASTA [Suspect]
     Indication: PRODUCT USED FOR UNKNOWN INDICATION
     Dosage: UNK
     Route: 065
  2. TAXOTERE [Concomitant]
     Indication: INVASIVE LOBULAR BREAST CARCINOMA
     Dosage: UNK
  3. CYCLOPHOSPHAMIDE [Concomitant]
     Indication: INVASIVE LOBULAR BREAST CARCINOMA
     Dosage: UNK
  4. EPIRUBICIN [Concomitant]
     Indication: INVASIVE LOBULAR BREAST CARCINOMA
     Dosage: UNK
  5. 5 FLUOROURACIL                     /00098801/ [Concomitant]
     Indication: INVASIVE LOBULAR BREAST CARCINOMA
     Dosage: UNK
  6. LETROZOLE [Concomitant]
     Indication: INVASIVE LOBULAR BREAST CARCINOMA
     Dosage: UNK

REACTIONS (4)
  - Neutropenia [Unknown]
  - Coronary artery disease [Unknown]
  - Febrile infection [Unknown]
  - Herpes zoster [Unknown]
